FAERS Safety Report 4513469-9 (Version None)
Quarter: 2004Q4

REPORT INFORMATION
  Report Type: 
  Country: None (occurrence: None)
  Receive Date: 20041130
  Receipt Date: 20041117
  Transmission Date: 20050328
  Serious: Yes (Hospitalization, Other)
  Sender: FDA-Public Use
  Company Number: 200418883US

PATIENT
  Age: 62 Year
  Sex: Male

DRUGS (1)
  1. GLYBURIDE [Suspect]
     Dosage: DOSE: UNK

REACTIONS (2)
  - CHEST PAIN [None]
  - PHOTOSENSITIVITY REACTION [None]
